FAERS Safety Report 7432788-X (Version None)
Quarter: 2011Q2

REPORT INFORMATION
  Report Type: 
  Country: None (occurrence: None)
  Receive Date: 20110422
  Receipt Date: 20110412
  Transmission Date: 20111010
  Serious: Yes (Hospitalization)
  Sender: FDA-Public Use
  Company Number: B0714774A

PATIENT
  Sex: Female

DRUGS (4)
  1. ZANIDIP [Concomitant]
     Route: 048
  2. AVANDAMET [Suspect]
     Dosage: 2TAB PER DAY
     Route: 048
     Dates: start: 20071201, end: 20091228
  3. PLAVIX [Concomitant]
     Route: 048
     Dates: start: 20080401
  4. APROVEL [Concomitant]
     Route: 048

REACTIONS (7)
  - COMA [None]
  - ANEURYSM RUPTURED [None]
  - AMNESIA [None]
  - MENINGORRHAGIA [None]
  - SPEECH DISORDER [None]
  - HEMIPARESIS [None]
  - VISUAL FIELD DEFECT [None]
